FAERS Safety Report 10337236 (Version 3)
Quarter: 2014Q4

REPORT INFORMATION
  Report Type: Spontaneous
  Country: US (occurrence: US)
  Receive Date: 20140723
  Receipt Date: 20141007
  Transmission Date: 20150528
  Serious: Yes (Other)
  Sender: FDA-Public Use
  Company Number: US-GILEAD-2014-0109476

PATIENT
  Age: 76 Year
  Sex: Male

DRUGS (1)
  1. LETAIRIS [Suspect]
     Active Substance: AMBRISENTAN
     Indication: PULMONARY ARTERIAL HYPERTENSION
     Dosage: 10 MG, UNK
     Route: 065
     Dates: start: 20140221

REACTIONS (6)
  - Blindness unilateral [Unknown]
  - Dizziness [Unknown]
  - Temporal arteritis [Unknown]
  - Headache [Unknown]
  - Dyskinesia [Unknown]
  - Gait disturbance [Unknown]
